FAERS Safety Report 10507203 (Version 2)
Quarter: 2014Q4

REPORT INFORMATION
  Report Type: Spontaneous
  Country: SE (occurrence: SE)
  Receive Date: 20141009
  Receipt Date: 20141009
  Transmission Date: 20150528
  Serious: Yes (Hospitalization, Other)
  Sender: FDA-Public Use
  Company Number: SE-PFIZER INC-2014031677

PATIENT
  Age: 74 Year
  Sex: Male

DRUGS (11)
  1. TIMOSAN [Concomitant]
     Active Substance: TIMOLOL MALEATE
  2. TRADOLAN [Concomitant]
     Active Substance: TRAMADOL
  3. MADOPARK [Concomitant]
  4. XALATAN [Concomitant]
     Active Substance: LATANOPROST
  5. TOVIAZ [Suspect]
     Active Substance: FESOTERODINE FUMARATE
     Dosage: UNK
  6. ISOSORBIDE MONONITRATE. [Concomitant]
     Active Substance: ISOSORBIDE MONONITRATE
     Dosage: UNK
  7. IMPUGAN [Concomitant]
     Active Substance: FUROSEMIDE
     Dosage: UNK
  8. SIMVASTATIN. [Concomitant]
     Active Substance: SIMVASTATIN
     Dosage: UNK
  9. NOVORAPID [Concomitant]
     Active Substance: INSULIN ASPART
     Dosage: UNK
  10. NOVOMIX 30 FLEXPEN [Concomitant]
     Active Substance: INSULIN ASPART
     Dosage: UNK
  11. ATENOLOL. [Concomitant]
     Active Substance: ATENOLOL

REACTIONS (4)
  - Asthenia [Unknown]
  - Confusional state [Unknown]
  - General physical health deterioration [Unknown]
  - Urinary retention [Unknown]

NARRATIVE: CASE EVENT DATE: 20131117
